FAERS Safety Report 8456858-2 (Version None)
Quarter: 2012Q2

REPORT INFORMATION
  Report Type: 
  Country: None (occurrence: None)
  Receive Date: 20120621
  Receipt Date: 20120608
  Transmission Date: 20120825
  Serious: Yes (Hospitalization)
  Sender: FDA-Public Use
  Company Number: US-JNJFOC-20120605066

PATIENT
  Sex: Male

DRUGS (1)
  1. XARELTO [Suspect]
     Indication: CARDIAC FLUTTER
     Route: 048
     Dates: start: 20120327, end: 20120401

REACTIONS (10)
  - MALAISE [None]
  - DEHYDRATION [None]
  - FATIGUE [None]
  - HYPERHIDROSIS [None]
  - CONSTIPATION [None]
  - HAEMOGLOBIN ABNORMAL [None]
  - HEART RATE INCREASED [None]
  - HYPOTENSION [None]
  - ASTHENIA [None]
  - ATRIAL FIBRILLATION [None]
